FAERS Safety Report 8991420 (Version 1)
Quarter: 2012Q4

REPORT INFORMATION
  Report Type: Report from Study
  Country: KR (occurrence: KR)
  Receive Date: 20121228
  Receipt Date: 20121228
  Transmission Date: 20130627
  Serious: Yes (Hospitalization)
  Sender: FDA-Public Use
  Company Number: KR-B.I. PHARMACEUTICALS,INC./RIDGEFIELD-2012-BI-04598YA

PATIENT
  Age: 70 Year
  Sex: Male

DRUGS (4)
  1. TAMSULOSINA [Suspect]
     Indication: BENIGN PROSTATIC HYPERPLASIA
     Dosage: 0.4 mg
     Route: 048
     Dates: start: 20121214
  2. TAMSULOSINA [Suspect]
     Dosage: 0.4 mg
     Route: 048
     Dates: start: 201212
  3. VESICARE (SOLIFENACIN) [Suspect]
     Indication: BENIGN PROSTATIC HYPERPLASIA
     Dosage: 5 mg
     Route: 048
     Dates: start: 20121214
  4. VESICARE (SOLIFENACIN) [Suspect]
     Dosage: 5 mg
     Route: 048
     Dates: start: 201212

REACTIONS (1)
  - Haemorrhage [Recovered/Resolved]
